FAERS Safety Report 6014067-0 (Version None)
Quarter: 2008Q4

REPORT INFORMATION
  Report Type: 
  Country: None (occurrence: None)
  Receive Date: 20081219
  Receipt Date: 20071119
  Transmission Date: 20090506
  Serious: No
  Sender: FDA-Public Use
  Company Number: A0695182A

PATIENT
  Age: 81 Year
  Sex: Male

DRUGS (6)
  1. AVODART [Suspect]
     Dosage: 1CAPL PER DAY
     Route: 048
     Dates: start: 20070901
  2. CARDIZEM [Concomitant]
  3. MAXZIDE [Concomitant]
  4. TOPROL-XL [Concomitant]
  5. LISINOPRIL [Concomitant]
  6. ASPIRIN [Concomitant]

REACTIONS (2)
  - DRUG INEFFECTIVE [None]
  - POLLAKIURIA [None]
